FAERS Safety Report 8950562 (Version 1)
Quarter: 2012Q4

REPORT INFORMATION
  Report Type: 
  Country: US (occurrence: None)
  Receive Date: 20121204
  Receipt Date: 20121204
  Transmission Date: 20130627
  Serious: Yes (Hospitalization)
  Sender: FDA-Public Use
  Company Number: None

PATIENT
  Sex: Male
  Weight: 98.4 kg

DRUGS (4)
  1. FLUOROURACIL [Suspect]
  2. BEVACIZUMAB [Suspect]
  3. LEUCOVORIN CALCIUM [Suspect]
  4. OXALIPLATIN [Suspect]

REACTIONS (12)
  - Iron deficiency anaemia [None]
  - Intestinal obstruction [None]
  - Colon cancer recurrent [None]
  - Metastases to lung [None]
  - Diarrhoea [None]
  - Hypotension [None]
  - Tachycardia [None]
  - Depressed level of consciousness [None]
  - Intestinal perforation [None]
  - General physical health deterioration [None]
  - Unresponsive to stimuli [None]
  - Small intestinal obstruction [None]
